FAERS Safety Report 7931032-4 (Version None)
Quarter: 2011Q4

REPORT INFORMATION
  Report Type: 
  Country: None (occurrence: None)
  Receive Date: 20111121
  Receipt Date: 20111114
  Transmission Date: 20120403
  Serious: Yes (Hospitalization)
  Sender: FDA-Public Use
  Company Number: PHHY2011GB099974

PATIENT
  Age: 80 Year
  Sex: Female

DRUGS (8)
  1. CITALOPRAM HYDROBROMIDE [Suspect]
     Dosage: 10 MG, UNK
     Route: 048
  2. RAMIPRIL [Concomitant]
     Dosage: UNK
  3. TEMAZEPAM [Concomitant]
     Dosage: UNK
  4. ACETAMINOPHEN AND CODEINE PHOSPHATE [Concomitant]
     Dosage: UNK
  5. FLUTICASONE PROPIONATE [Concomitant]
     Dosage: UNK
  6. ADCAL-D3 [Concomitant]
     Dosage: UNK
  7. ALBUTEROL SULFATE AUTOHALER [Concomitant]
     Dosage: UNK
  8. SALMETEROL [Concomitant]
     Dosage: UNK

REACTIONS (4)
  - CIRCULATORY COLLAPSE [None]
  - SYNCOPE [None]
  - HYPONATRAEMIA [None]
  - HYPOTENSION [None]
